FAERS Safety Report 7215516-2 (Version None)
Quarter: 2011Q1

REPORT INFORMATION
  Report Type: 
  Country: None (occurrence: None)
  Receive Date: 20110104
  Receipt Date: 20110104
  Transmission Date: 20110831
  Serious: Yes (Hospitalization)
  Sender: FDA-Public Use
  Company Number: None

PATIENT
  Sex: Female
  Weight: 55.8 kg

DRUGS (6)
  1. CYCLOPHOSPHAMIDE [Suspect]
     Dosage: 3200 MG, 1000 MG/M2 IV ON DAY 1 AND 29
     Route: 042
  2. MERCAPTOPURINE [Suspect]
     Dosage: 2700 MG
  3. CYTARABINE [Suspect]
     Dosage: 1920 MG
  4. METHOTREXATE [Suspect]
     Dosage: 60 MG
  5. PEG-L ASPARAGINASE (K-H) [Suspect]
     Dosage: 8050 IU
  6. VINCRISTINE SULFATE [Suspect]
     Dosage: 8 MG

REACTIONS (4)
  - ASPERGILLUS TEST POSITIVE [None]
  - LUNG INFECTION [None]
  - FEBRILE NEUTROPENIA [None]
  - PNEUMONIA NECROTISING [None]
